FAERS Safety Report 7067179-7 (Version None)
Quarter: 2010Q4

REPORT INFORMATION
  Report Type: 
  Country: None (occurrence: None)
  Receive Date: 20101028
  Receipt Date: 20101019
  Transmission Date: 20110411
  Serious: No
  Sender: FDA-Public Use
  Company Number: US-BIOGENIDEC-2010BI037052

PATIENT
  Age: 47 Year
  Sex: Female

DRUGS (2)
  1. TYSABRI [Suspect]
     Indication: MULTIPLE SCLEROSIS
     Route: 042
     Dates: start: 20090804
  2. AMPYRA [Concomitant]
     Indication: GAIT DISTURBANCE

REACTIONS (6)
  - CEREBRAL ATROPHY [None]
  - CONSTIPATION [None]
  - CRYING [None]
  - FATIGUE [None]
  - SPINAL DISORDER [None]
  - SPONDYLITIS [None]
